FAERS Safety Report 5990729-6 (Version None)
Quarter: 2008Q4

REPORT INFORMATION
  Report Type: 
  Country: None (occurrence: None)
  Receive Date: 20081211
  Receipt Date: 20081204
  Transmission Date: 20090506
  Serious: Yes (Other)
  Sender: FDA-Public Use
  Company Number: JP-ASTRAZENECA-2008AP09446

PATIENT
  Age: 92 Year
  Sex: Female

DRUGS (14)
  1. XYLOCAINE [Suspect]
     Indication: NERVE BLOCK
     Route: 053
     Dates: start: 20080906, end: 20080906
  2. XYLOCAINE [Suspect]
     Route: 053
  3. XYLOCAINE [Suspect]
     Route: 053
  4. XYLOCAINE [Suspect]
     Route: 053
     Dates: start: 20081025, end: 20081025
  5. XYLOCAINE [Suspect]
     Route: 053
     Dates: start: 20081101, end: 20081101
  6. XYLOCAINE [Suspect]
     Route: 053
     Dates: start: 20081108, end: 20081108
  7. XYLOCAINE [Suspect]
     Route: 053
     Dates: start: 20081115, end: 20081115
  8. MARCAINE [Suspect]
     Indication: NERVE BLOCK
     Route: 053
     Dates: start: 20080906, end: 20080906
  9. MARCAINE [Suspect]
     Route: 053
  10. MARCAINE [Suspect]
     Route: 053
  11. MARCAINE [Suspect]
     Route: 053
     Dates: start: 20081025, end: 20081025
  12. MARCAINE [Suspect]
     Route: 053
     Dates: start: 20081101, end: 20081101
  13. MARCAINE [Suspect]
     Route: 053
     Dates: start: 20081108, end: 20081108
  14. MARCAINE [Suspect]
     Route: 053
     Dates: start: 20081115, end: 20081115

REACTIONS (1)
  - BLOOD CREATINE INCREASED [None]
